FAERS Safety Report 16306442 (Version 5)
Quarter: 2019Q4

REPORT INFORMATION
  Report Type: Spontaneous
  Country: US (occurrence: US)
  Receive Date: 20190513
  Receipt Date: 20191007
  Transmission Date: 20200122
  Serious: Yes (Hospitalization, Other)
  Sender: FDA-Public Use
  Company Number: US-INCYTE CORPORATION-2019IN003177

PATIENT

DRUGS (3)
  1. JAKAFI [Suspect]
     Active Substance: RUXOLITINIB
     Dosage: 10 MILLIGRAM, BID
     Route: 048
     Dates: start: 20190730, end: 201908
  2. JAKAFI [Suspect]
     Active Substance: RUXOLITINIB
     Dosage: 10 MILLIGRAM, BID
     Route: 048
     Dates: end: 20190820
  3. JAKAFI [Suspect]
     Active Substance: RUXOLITINIB
     Indication: MYELOFIBROSIS
     Dosage: 10 MILLIGRAM, BID
     Route: 048
     Dates: start: 20190131

REACTIONS (10)
  - Gastric ulcer [Unknown]
  - Anaemia [Recovering/Resolving]
  - Inflammation [Unknown]
  - Transfusion reaction [Unknown]
  - Feeling hot [Unknown]
  - Melaena [Recovering/Resolving]
  - Gastric ulcer haemorrhage [Recovered/Resolved]
  - Erythema [Unknown]
  - Pain in extremity [Unknown]
  - Pyrexia [Unknown]

NARRATIVE: CASE EVENT DATE: 20190328
